FAERS Safety Report 7950688-3 (Version None)
Quarter: 2011Q4

REPORT INFORMATION
  Report Type: 
  Country: None (occurrence: None)
  Receive Date: 20111201
  Receipt Date: 20111121
  Transmission Date: 20120403
  Serious: Yes (Hospitalization)
  Sender: FDA-Public Use
  Company Number: US-BAYER-2011-061822

PATIENT
  Age: 33 Year
  Sex: Female
  Weight: 153.29 kg

DRUGS (2)
  1. YAZ [Suspect]
     Dosage: UNK
     Dates: start: 20080801, end: 20081201
  2. YAZ [Suspect]
     Dosage: UNK
     Dates: start: 20090801, end: 20100401

REACTIONS (7)
  - PSYCHOLOGICAL TRAUMA [None]
  - DEEP VEIN THROMBOSIS [None]
  - ANXIETY [None]
  - MENTAL DISORDER [None]
  - PAIN [None]
  - ANHEDONIA [None]
  - DEPRESSION [None]
